FAERS Safety Report 6261440-1 (Version None)
Quarter: 2009Q3

REPORT INFORMATION
  Report Type: 
  Country: None (occurrence: None)
  Receive Date: 20090709
  Receipt Date: 20090625
  Transmission Date: 20100115
  Serious: Yes (Disabling)
  Sender: FDA-Public Use
  Company Number: AU-ASTRAZENECA-2008AP03246

PATIENT
  Age: 819 Month
  Sex: Male

DRUGS (2)
  1. ZOLADEX [Suspect]
     Indication: PROSTATE CANCER
     Dosage: CYCLICAL
     Route: 058
     Dates: start: 20071015
  2. RADIOTHERAPY [Concomitant]
     Dates: end: 20080301

REACTIONS (1)
  - PHIMOSIS [None]
